FAERS Safety Report 16687659 (Version 1)
Quarter: 2019Q3

REPORT INFORMATION
  Report Type: Spontaneous
  Country: US (occurrence: US)
  Receive Date: 20190809
  Receipt Date: 20190809
  Transmission Date: 20191004
  Serious: No
  Sender: FDA-Public Use
  Company Number: US-PFIZER INC-2019336592

PATIENT
  Sex: Female

DRUGS (2)
  1. PROTONIX [Suspect]
     Active Substance: PANTOPRAZOLE SODIUM
     Dosage: UNK
  2. SUCRALFATE. [Suspect]
     Active Substance: SUCRALFATE
     Dosage: UNK

REACTIONS (3)
  - Pain in extremity [Unknown]
  - Gastric disorder [Unknown]
  - Malaise [Unknown]
